FAERS Safety Report 6179090-4 (Version None)
Quarter: 2009Q2

REPORT INFORMATION
  Report Type: 
  Country: None (occurrence: None)
  Receive Date: 20090505
  Receipt Date: 20090324
  Transmission Date: 20091009
  Serious: Yes (Other)
  Sender: FDA-Public Use
  Company Number: US-ASTRAZENECA-2009UW01558

PATIENT
  Age: 40 Year
  Sex: Female

DRUGS (13)
  1. SEROQUEL XR [Suspect]
     Indication: SCHIZOPHRENIA
     Route: 048
     Dates: start: 20081014, end: 20081014
  2. SEROQUEL XR [Suspect]
     Route: 048
     Dates: start: 20081015, end: 20081015
  3. SEROQUEL XR [Suspect]
     Route: 048
     Dates: start: 20081016, end: 20081023
  4. SEROQUEL XR [Suspect]
     Route: 048
     Dates: start: 20081024, end: 20081124
  5. SEROQUEL XR [Suspect]
     Route: 048
     Dates: start: 20081125, end: 20090119
  6. ZYPREXA [Concomitant]
     Indication: SCHIZOPHRENIA
     Route: 048
     Dates: start: 20070601, end: 20081014
  7. ZYPREXA [Concomitant]
     Route: 048
     Dates: start: 20090119
  8. PERFENACINE [Concomitant]
     Indication: SCHIZOPHRENIA
     Route: 048
     Dates: start: 20080215, end: 20081014
  9. PERFENACINE [Concomitant]
     Route: 048
     Dates: start: 20090119
  10. ENALAPRIL [Concomitant]
     Indication: HYPERTENSION
     Route: 048
     Dates: start: 20070101
  11. ATENOLOL [Concomitant]
     Indication: HYPERTENSION
     Route: 048
     Dates: start: 20070101
  12. HALOPERIDOL [Concomitant]
     Indication: SCHIZOPHRENIA
     Route: 048
     Dates: start: 20090119
  13. CLONAZEPAM [Concomitant]
     Indication: SCHIZOPHRENIA
     Route: 048
     Dates: start: 20090119

REACTIONS (1)
  - SCHIZOPHRENIA [None]
